FAERS Safety Report 15225918 (Version 2)
Quarter: 2018Q3

REPORT INFORMATION
  Report Type: Report from Study
  Country: US (occurrence: US)
  Receive Date: 20180801
  Receipt Date: 20180919
  Transmission Date: 20181010
  Serious: Yes (Other)
  Sender: FDA-Public Use
  Company Number: US-SA-2018SA200786

PATIENT
  Age: 47 Year
  Sex: Female

DRUGS (1)
  1. INSULIN GLARGINE [Suspect]
     Active Substance: INSULIN GLARGINE
     Indication: TYPE 2 DIABETES MELLITUS
     Dosage: 30 U, UNK
     Dates: start: 20160701

REACTIONS (10)
  - Hypoglycaemia [Recovering/Resolving]
  - Dizziness [Unknown]
  - Fatigue [Unknown]
  - Blood glucose fluctuation [Recovering/Resolving]
  - Memory impairment [Unknown]
  - Loss of consciousness [Unknown]
  - Back pain [Not Recovered/Not Resolved]
  - Decreased activity [Not Recovered/Not Resolved]
  - Stenosis [Not Recovered/Not Resolved]
  - Drug dose omission [Unknown]

NARRATIVE: CASE EVENT DATE: 20160701
